FAERS Safety Report 9248834 (Version 4)
Quarter: 2014Q1

REPORT INFORMATION
  Report Type: Report from Study
  Country: GB (occurrence: GB)
  Receive Date: 20130423
  Receipt Date: 20140203
  Transmission Date: 20141002
  Serious: Yes (Death, Hospitalization)
  Sender: FDA-Public Use
  Company Number: GB-ROCHE-1216529

PATIENT
  Age: 77 Year
  Sex: Female

DRUGS (10)
  1. LUCENTIS [Suspect]
     Indication: MACULAR DEGENERATION
     Route: 050
     Dates: start: 20111214
  2. LUCENTIS [Suspect]
     Route: 050
     Dates: start: 20120225
  3. ACETYLSALICYLIC ACID [Concomitant]
  4. CITALOPRAM [Concomitant]
  5. DONEPEZIL [Concomitant]
  6. FUROSEMIDE [Concomitant]
  7. OLMESARTAN [Concomitant]
  8. PARACETAMOL [Concomitant]
  9. BISOPROLOL [Concomitant]
  10. HYDROCOBAMINE [Concomitant]

REACTIONS (4)
  - Pancytopenia [Fatal]
  - Myelodysplastic syndrome [Fatal]
  - Atrial fibrillation [Fatal]
  - Orthostatic hypertension [Unknown]
